FAERS Safety Report 7668656-8 (Version None)
Quarter: 2011Q3

REPORT INFORMATION
  Report Type: 
  Country: None (occurrence: None)
  Receive Date: 20110808
  Receipt Date: 20110718
  Transmission Date: 20111222
  Serious: Yes (Hospitalization, Other)
  Sender: FDA-Public Use
  Company Number: US-AMGEN-USACT2011036189

PATIENT
  Age: 64 Year
  Sex: Female

DRUGS (4)
  1. PEGFILGRASTIM [Suspect]
     Indication: BREAST CANCER
     Dosage: 6 MG, UNK
     Dates: start: 20090708
  2. DOXORUBICIN HCL [Suspect]
     Indication: BREAST CANCER
     Dosage: 60 MG/M2, Q2WK
     Route: 042
     Dates: start: 20090708
  3. BEVACIZUMAB [Suspect]
     Indication: BREAST CANCER
     Dosage: 10 A?G/KG, UNK
     Route: 042
     Dates: start: 20090708
  4. CYCLOPHOSPHAMIDE [Suspect]
     Indication: BREAST CANCER
     Dosage: 600 MG/M2, Q2WK
     Route: 042
     Dates: start: 20090708

REACTIONS (3)
  - FATIGUE [None]
  - FEBRILE NEUTROPENIA [None]
  - NEUTROPHIL COUNT [None]
